FAERS Safety Report 17662070 (Version 1)
Quarter: 2020Q2

REPORT INFORMATION
  Report Type: Spontaneous
  Country: US (occurrence: US)
  Receive Date: 20200413
  Receipt Date: 20200413
  Transmission Date: 20200713
  Serious: No
  Sender: FDA-Public Use
  Company Number: US-UPSHER-SMITH LABORATORIES, LLC-2020USL00135

PATIENT

DRUGS (1)
  1. QUDEXY XR [Suspect]
     Active Substance: TOPIRAMATE

REACTIONS (1)
  - Photopsia [Unknown]
